FAERS Safety Report 13713891 (Version 1)
Quarter: 2017Q3

REPORT INFORMATION
  Report Type: Spontaneous
  Country: IN (occurrence: IN)
  Receive Date: 20170704
  Receipt Date: 20170704
  Transmission Date: 20171127
  Serious: Yes (Other)
  Sender: FDA-Public Use
  Company Number: IN-LUPIN PHARMACEUTICALS INC.-2017-03302

PATIENT
  Age: 30 Year
  Sex: Male

DRUGS (5)
  1. LEVOFLOXACIN. [Suspect]
     Active Substance: LEVOFLOXACIN
     Indication: LIVER DISORDER
  2. LEVOFLOXACIN. [Suspect]
     Active Substance: LEVOFLOXACIN
     Indication: DECREASED APPETITE
     Dosage: 1 DF, QD
     Route: 048
     Dates: start: 201706, end: 20170619
  3. ALERCY AX [Concomitant]
     Indication: LIVER DISORDER
     Dosage: 1 DF, QD
     Route: 048
     Dates: start: 201706
  4. RANIDOM RD [Concomitant]
     Indication: LIVER DISORDER
     Dosage: 1 DF, BID
     Route: 048
     Dates: start: 201706
  5. SUPRADYN                           /02135201/ [Concomitant]
     Indication: LIVER DISORDER
     Dosage: 1 DF, QD
     Route: 048
     Dates: start: 201706

REACTIONS (2)
  - Haematochezia [Recovered/Resolved]
  - Drug dispensing error [Unknown]

NARRATIVE: CASE EVENT DATE: 20170619
